FAERS Safety Report 7526153-4 (Version None)
Quarter: 2011Q2

REPORT INFORMATION
  Report Type: 
  Country: None (occurrence: None)
  Receive Date: 20110603
  Receipt Date: 20110603
  Transmission Date: 20111010
  Serious: Yes (Death, Hospitalization)
  Sender: FDA-Public Use
  Company Number: None

PATIENT
  Sex: Female
  Weight: 54.5 kg

DRUGS (3)
  1. COUMADIN [Concomitant]
  2. METOPROLOL [Concomitant]
  3. TAXOL [Suspect]
     Dosage: 272 MG
     Dates: end: 20110502

REACTIONS (8)
  - REFUSAL OF TREATMENT BY RELATIVE [None]
  - BLOOD PHOSPHORUS DECREASED [None]
  - DEHYDRATION [None]
  - IMPAIRED SELF-CARE [None]
  - GENERAL PHYSICAL HEALTH DETERIORATION [None]
  - REFUSAL OF TREATMENT BY PATIENT [None]
  - ASTHENIA [None]
  - FATIGUE [None]
